FAERS Safety Report 4316067-5 (Version None)
Quarter: 2004Q1

REPORT INFORMATION
  Report Type: 
  Country: None (occurrence: None)
  Receive Date: 20040310
  Receipt Date: 20040304
  Transmission Date: 20041129
  Serious: Yes (Other)
  Sender: FDA-Public Use
  Company Number: GBWYE521920JAN04

PATIENT
  Sex: Female

DRUGS (8)
  1. EFFEXOR XR [Suspect]
     Dosage: 2 X 150MG CAPSULE
     Route: 048
  2. BETAHISTINE (BETAHISTINE) [Concomitant]
  3. AMITRIPTYLINE HCL [Concomitant]
  4. BENDROFLUAZIDE (BENDROFLUMETHIAZIDE) [Concomitant]
  5. TIBOLONE (TIBOLONE) [Concomitant]
  6. CO-CODAMOL (CODEINE PHOSPHATE/PARACETAMOL) [Concomitant]
  7. CO-PROXAMOL (DEXTROPROPOXYPHENE HYDROCHLORIDE/PARACETAMOL) [Concomitant]
  8. ACETAMINOPHEN [Concomitant]

REACTIONS (5)
  - ACCIDENTAL EXPOSURE [None]
  - DYSPNOEA [None]
  - MEDICATION ERROR [None]
  - PANIC REACTION [None]
  - SWOLLEN TONGUE [None]
